FAERS Safety Report 8401793-9 (Version None)
Quarter: 2012Q2

REPORT INFORMATION
  Report Type: 
  Country: None (occurrence: None)
  Receive Date: 20120529
  Receipt Date: 19980324
  Transmission Date: 20120825
  Serious: Yes (Other)
  Sender: FDA-Public Use
  Company Number: 003582

PATIENT
  Age: 70 Year
  Sex: Male

DRUGS (4)
  1. PLETAL [Suspect]
     Dosage: 200 MG MILLIGRAM(S), DAILY DOSE, ORAL
     Route: 048
  2. BUFLOMEDIL (BUFLOMEDIL) [Concomitant]
  3. ASPIRIN [Concomitant]
  4. FUROSEMIDE [Concomitant]

REACTIONS (1)
  - EXTRAPYRAMIDAL DISORDER [None]
